FAERS Safety Report 4599294-1 (Version None)
Quarter: 2005Q1

REPORT INFORMATION
  Report Type: 
  Country: None (occurrence: None)
  Receive Date: 20050303
  Receipt Date: 20050303
  Transmission Date: 20050727
  Serious: Yes (Death)
  Sender: FDA-Public Use
  Company Number: None

PATIENT
  Age: 36 Year
  Sex: Female

DRUGS (3)
  1. AMITRIPTYLINE [Suspect]
     Indication: MIGRAINE PROPHYLAXIS
     Dosage: 150MG  HS ORAL
     Route: 048
     Dates: start: 20050105, end: 20050123
  2. PROPRANOLOL [Concomitant]
  3. MOBIC [Concomitant]

REACTIONS (2)
  - COMA [None]
  - CONVULSION [None]
